FAERS Safety Report 5048391-5 (Version None)
Quarter: 2006Q2

REPORT INFORMATION
  Report Type: 
  Country: None (occurrence: None)
  Receive Date: 20060601
  Receipt Date: 20060322
  Transmission Date: 20061013
  Serious: No
  Sender: FDA-Public Use
  Company Number: 2006PV010757

PATIENT
  Age: 68 Year
  Sex: Male
  Weight: 113.3993 kg

DRUGS (16)
  1. SYMLIN [Suspect]
     Indication: DIABETES MELLITUS NON-INSULIN-DEPENDENT
     Dosage: SEE IMAGE
     Route: 058
     Dates: start: 20060317, end: 20060322
  2. SYMLIN [Suspect]
     Indication: DIABETES MELLITUS NON-INSULIN-DEPENDENT
     Dosage: SEE IMAGE
     Route: 058
     Dates: start: 20060322
  3. BYETTA [Suspect]
     Indication: DRUG USE FOR UNKNOWN INDICATION
     Dosage: 5 MCG;BID;SC
     Route: 058
     Dates: start: 20050907, end: 20060310
  4. GLUCOPHAGE [Concomitant]
  5. AVANDIA [Concomitant]
  6. GLUCOTROL [Concomitant]
  7. HUMULIN 70/30 [Concomitant]
  8. NOVOLOG [Concomitant]
  9. ALDARA [Concomitant]
  10. NAFTIN [Concomitant]
  11. AMBIEN [Concomitant]
  12. PREVACID [Concomitant]
  13. SINGULAIR [Concomitant]
  14. METOPROLOL TARTRATE [Concomitant]
  15. DETROL [Concomitant]
  16. FLOMAX [Concomitant]

REACTIONS (2)
  - BLOOD GLUCOSE DECREASED [None]
  - BLOOD GLUCOSE INCREASED [None]
